FAERS Safety Report 5579057-0 (Version None)
Quarter: 2007Q4

REPORT INFORMATION
  Report Type: 
  Country: None (occurrence: None)
  Receive Date: 20071221
  Receipt Date: 20071213
  Transmission Date: 20080405
  Serious: Yes (Other)
  Sender: FDA-Public Use
  Company Number: CHPA2007US13712

PATIENT
  Age: 57 Year
  Sex: Female
  Weight: 95.2 kg

DRUGS (1)
  1. GAS-X CHEWABLE TABLETS PEPPERMINT CREME (NCH)(SIMETHICONE) CHEWABLE TA [Suspect]
     Indication: FLATULENCE
     Dosage: 160 MG, ONCE/SINGLE, ORAL
     Route: 048
     Dates: start: 20071213

REACTIONS (1)
  - BLOOD PRESSURE INCREASED [None]
